FAERS Safety Report 23382731 (Version 3)
Quarter: 2024Q1

REPORT INFORMATION
  Report Type: Spontaneous
  Country: US (occurrence: US)
  Receive Date: 20240109
  Receipt Date: 20240220
  Transmission Date: 20240410
  Serious: Yes (Death, Hospitalization, Other)
  Sender: FDA-Public Use
  Company Number: US-PFIZER INC-202300303539

PATIENT
  Age: 83 Year
  Sex: Male
  Weight: 81.65 kg

DRUGS (16)
  1. VYNDAMAX [Suspect]
     Active Substance: TAFAMIDIS
     Indication: Cardiac amyloidosis
     Dosage: 61 MG, 1X/DAY
     Dates: start: 20230201, end: 20231231
  2. METOPROLOL [Concomitant]
     Active Substance: METOPROLOL
     Dosage: UNK, DAILY (ER, AM MEDS)
  3. FINASTERIDE [Concomitant]
     Active Substance: FINASTERIDE
     Dosage: UNK, DAILY (AM MEDS)
  4. TAMSULOSIN [Concomitant]
     Active Substance: TAMSULOSIN
     Dosage: UNK, DAILY (AM MEDS)
  5. BUMETANIDE [Concomitant]
     Active Substance: BUMETANIDE
     Dosage: UNK, 2X/DAY (AM MEDS AND PM MEDS)
  6. METOLAZONE [Concomitant]
     Active Substance: METOLAZONE
     Dosage: UNK, DAILY (AM MEDS)
  7. VITAMIN C [Concomitant]
     Active Substance: ASCORBIC ACID
     Dosage: UNK, DAILY (AM MEDS)
  8. VITAMIN D3 [Concomitant]
     Active Substance: CHOLECALCIFEROL
     Dosage: UNK, DAILY (AM MEDS)
  9. POTASSIUM CHLORIDE [Concomitant]
     Active Substance: POTASSIUM CHLORIDE
     Dosage: UNK, 2X/DAY (ER, AM MEDS AND PM MEDS)
  10. COLCHICINE [Concomitant]
     Active Substance: COLCHICINE
     Dosage: UNK, 2X/DAY (AM MEDS AND PM MEDS)
  11. PRAVASTATIN [Concomitant]
     Active Substance: PRAVASTATIN
     Dosage: UNK, DAILY (PM MEDS)
  12. ASPIRIN [Concomitant]
     Active Substance: ASPIRIN
     Dosage: UNK, DAILY (PM MEDS)
  13. SERTRALINE [Concomitant]
     Active Substance: SERTRALINE HYDROCHLORIDE
     Dosage: UNK, DAILY (PM MEDS)
  14. PANTOPRAZOLE [Concomitant]
     Active Substance: PANTOPRAZOLE
     Dosage: UNK, DAILY (PM MEDS)
  15. TYLENOL [Concomitant]
     Active Substance: ACETAMINOPHEN
     Dosage: UNK, AS NEEDED (500 EXTRA STRENGTH)
  16. NITROSTAT [Concomitant]
     Active Substance: NITROGLYCERIN
     Dosage: UNK, AS NEEDED

REACTIONS (9)
  - Cardiac amyloidosis [Fatal]
  - Sepsis [Fatal]
  - Aspiration [Fatal]
  - Hypervolaemia [Fatal]
  - White blood cell count increased [Unknown]
  - Blood creatinine increased [Unknown]
  - Blood sodium decreased [Unknown]
  - Cardiac function test abnormal [Unknown]
  - Renal impairment [Unknown]

NARRATIVE: CASE EVENT DATE: 20231225
